FAERS Safety Report 6087924-7 (Version None)
Quarter: 2009Q1

REPORT INFORMATION
  Report Type: 
  Country: None (occurrence: None)
  Receive Date: 20090223
  Receipt Date: 20090213
  Transmission Date: 20090719
  Serious: Yes (Hospitalization)
  Sender: FDA-Public Use
  Company Number: US-ABBOTT-08P-163-0491283-00

PATIENT
  Sex: Female
  Weight: 88.53 kg

DRUGS (12)
  1. HUMIRA [Suspect]
     Indication: PSORIASIS
     Route: 058
     Dates: start: 20080501, end: 20080701
  2. HUMIRA [Suspect]
     Route: 058
     Dates: start: 20080801, end: 20081030
  3. SORIATANE [Suspect]
     Indication: PSORIASIS
  4. LOPRESSOR [Concomitant]
     Indication: HYPERTENSION
     Route: 048
  5. ZOCOR [Concomitant]
     Indication: BLOOD CHOLESTEROL INCREASED
     Route: 048
  6. NEURONTIN [Concomitant]
     Indication: PAIN IN EXTREMITY
     Route: 048
  7. FLEXERIL [Concomitant]
     Indication: ARTHRALGIA
     Route: 048
  8. FLEXERIL [Concomitant]
     Indication: BACK PAIN
  9. KLONOPIN [Concomitant]
     Indication: ANXIETY
     Route: 048
  10. TRAZODONE HCL [Concomitant]
     Indication: ANXIETY
     Route: 048
  11. FLAGYL [Concomitant]
     Indication: CLOSTRIDIAL INFECTION
     Dates: start: 20080101
  12. ASPIRIN [Concomitant]
     Indication: DRUG USE FOR UNKNOWN INDICATION

REACTIONS (7)
  - CLOSTRIDIUM DIFFICILE COLITIS [None]
  - DIARRHOEA [None]
  - DIARRHOEA HAEMORRHAGIC [None]
  - HAEMATEMESIS [None]
  - PAIN IN EXTREMITY [None]
  - PEPTIC ULCER [None]
  - VOMITING [None]
